FAERS Safety Report 14739371 (Version 1)
Quarter: 2018Q2

REPORT INFORMATION
  Report Type: Spontaneous
  Country: US (occurrence: US)
  Receive Date: 20180410
  Receipt Date: 20180410
  Transmission Date: 20180711
  Serious: No
  Sender: FDA-Public Use
  Company Number: US-009507513-1803USA009379

PATIENT
  Age: 19 Year
  Sex: Female
  Weight: 44.9 kg

DRUGS (1)
  1. NUVARING [Suspect]
     Active Substance: ETHINYL ESTRADIOL\ETONOGESTREL
     Indication: CONTRACEPTION
     Dosage: 1 RING, CONTINOUSLY
     Route: 067
     Dates: start: 201712

REACTIONS (6)
  - Heart rate increased [Unknown]
  - Oropharyngeal pain [Unknown]
  - Dizziness [Unknown]
  - Breast pain [Unknown]
  - Rhinorrhoea [Unknown]
  - Abdominal pain upper [Unknown]

NARRATIVE: CASE EVENT DATE: 201801
